FAERS Safety Report 22155513 (Version 2)
Quarter: 2023Q2

REPORT INFORMATION
  Report Type: Spontaneous
  Country: BR (occurrence: BR)
  Receive Date: 20230330
  Receipt Date: 20230517
  Transmission Date: 20230721
  Serious: Yes (Other)
  Sender: FDA-Public Use
  Company Number: BR-TAKEDA-2023TUS031052

PATIENT
  Age: 72 Year
  Sex: Female
  Weight: 80 kg

DRUGS (3)
  1. LISDEXAMFETAMINE DIMESYLATE [Suspect]
     Active Substance: LISDEXAMFETAMINE DIMESYLATE
     Indication: Depression
     Dosage: 70 MILLIGRAM, QD
     Route: 048
  2. LISDEXAMFETAMINE DIMESYLATE [Suspect]
     Active Substance: LISDEXAMFETAMINE DIMESYLATE
     Indication: Panic disorder
  3. GLYPHAGEN [Concomitant]
     Indication: Diabetes mellitus
     Dosage: 750 MILLIGRAM, TID
     Route: 065

REACTIONS (6)
  - Diabetes mellitus [Unknown]
  - Drug dependence [Unknown]
  - Malaise [Recovered/Resolved]
  - Fear [Recovered/Resolved]
  - Depression [Recovered/Resolved]
  - Product use issue [Recovered/Resolved]

NARRATIVE: CASE EVENT DATE: 20221201
